FAERS Safety Report 9969702 (Version 1)
Quarter: 2014Q1

REPORT INFORMATION
  Report Type: Spontaneous
  Country: US (occurrence: None)
  Receive Date: 20140304
  Receipt Date: 20140304
  Transmission Date: 20141002
  Serious: Yes (Other)
  Sender: FDA-Public Use
  Company Number: None

PATIENT
  Age: 44 Year
  Sex: Male
  Weight: 156.95 kg

DRUGS (2)
  1. CYCLOBENZAPRINE HCL [Suspect]
     Indication: MUSCLE SPASMS
     Dosage: 1 PILL, TWICE DAILY, TAKEN BY MOUTH
     Route: 048
     Dates: start: 20140210, end: 20140214
  2. CYCLOBENZAPRINE HCL [Suspect]
     Indication: RESTLESS LEGS SYNDROME
     Dosage: 1 PILL, TWICE DAILY, TAKEN BY MOUTH
     Route: 048
     Dates: start: 20140210, end: 20140214

REACTIONS (4)
  - Constipation [None]
  - Diarrhoea [None]
  - Abdominal distension [None]
  - Abdominal pain upper [None]
